FAERS Safety Report 4393915-4 (Version None)
Quarter: 2004Q3

REPORT INFORMATION
  Report Type: 
  Country: None (occurrence: None)
  Receive Date: 20040702
  Receipt Date: 20040628
  Transmission Date: 20050211
  Serious: Yes (Hospitalization)
  Sender: FDA-Public Use
  Company Number: TPA2004A00801

PATIENT
  Age: 88 Year
  Sex: Female
  Weight: 59.8748 kg

DRUGS (2)
  1. ACTOS [Suspect]
     Indication: DIABETES MELLITUS NON-INSULIN-DEPENDENT
     Dosage: 15 MG, 1 IN  1 D, PER ORAL
     Route: 048
     Dates: start: 20020901
  2. ACIPHEX [Concomitant]

REACTIONS (2)
  - HYPOAESTHESIA [None]
  - TRANSIENT ISCHAEMIC ATTACK [None]
